FAERS Safety Report 19439542 (Version 1)
Quarter: 2021Q2

REPORT INFORMATION
  Report Type: Spontaneous
  Country: US (occurrence: US)
  Receive Date: 20210618
  Receipt Date: 20210618
  Transmission Date: 20210717
  Serious: Yes (Hospitalization, Other)
  Sender: FDA-Public Use
  Company Number: US-AUROBINDO-AUR-APL-2021-024901

PATIENT
  Age: 44 Year
  Sex: Male

DRUGS (1)
  1. IBUPROFEN TABLETS USP 800MG [Suspect]
     Active Substance: IBUPROFEN
     Indication: PRODUCT USED FOR UNKNOWN INDICATION
     Dosage: 90 DOSAGE FORM
     Route: 048

REACTIONS (7)
  - Somnolence [Unknown]
  - Metabolic acidosis [Recovered/Resolved]
  - Hyperkalaemia [Recovered/Resolved]
  - Rhabdomyolysis [Recovered/Resolved]
  - Anxiety [Unknown]
  - Overdose [Unknown]
  - Renal failure [Recovered/Resolved]
